FAERS Safety Report 5867960-3 (Version None)
Quarter: 2008Q3

REPORT INFORMATION
  Report Type: 
  Country: None (occurrence: None)
  Receive Date: 20080902
  Receipt Date: 20080826
  Transmission Date: 20090109
  Serious: Yes (Hospitalization)
  Sender: FDA-Public Use
  Company Number: FR-BOEHRINGER INGELHEIM GMBH, GERMANY-2008-FF-00608FF

PATIENT
  Age: 67 Year
  Sex: Female

DRUGS (8)
  1. MICARDIS [Suspect]
     Route: 048
  2. LASIX [Suspect]
     Route: 048
     Dates: end: 20080523
  3. ZANIDIP [Suspect]
     Route: 048
  4. PREVISCAN [Concomitant]
  5. LEVOTHYROX [Concomitant]
  6. CRESTOR [Concomitant]
  7. TEMERIT [Concomitant]
     Route: 048
  8. LERCAN [Concomitant]
     Route: 048

REACTIONS (3)
  - LOSS OF CONSCIOUSNESS [None]
  - MALAISE [None]
  - ORTHOSTATIC HYPOTENSION [None]
